FAERS Safety Report 9174116 (Version 1)
Quarter: 2013Q1

REPORT INFORMATION
  Report Type: Spontaneous
  Country: US (occurrence: US)
  Receive Date: 20130320
  Receipt Date: 20130320
  Transmission Date: 20140127
  Serious: No
  Sender: FDA-Public Use
  Company Number: US-PFIZER INC-2013088826

PATIENT
  Sex: Male

DRUGS (2)
  1. PROCARDIA [Suspect]
     Indication: BLOOD PRESSURE INCREASED
     Dosage: UNK, DAILY
     Route: 048
     Dates: start: 201209
  2. JANUMET [Concomitant]
     Indication: DIABETES MELLITUS
     Dosage: UNK, TWO TIMES A DAY

REACTIONS (1)
  - Gingival hyperplasia [Not Recovered/Not Resolved]
